FAERS Safety Report 7495298-X (Version None)
Quarter: 2011Q2

REPORT INFORMATION
  Report Type: 
  Country: None (occurrence: None)
  Receive Date: 20110523
  Receipt Date: 20110512
  Transmission Date: 20111010
  Serious: Yes (Disabling)
  Sender: FDA-Public Use
  Company Number: GB-BRISTOL-MYERS SQUIBB COMPANY-15764707

PATIENT
  Age: 42 Year
  Sex: Male
  Weight: 85 kg

DRUGS (3)
  1. AMOXICILLIN [Suspect]
     Dates: start: 20110504
  2. METFORMIN HCL [Suspect]
     Dates: start: 20110504
  3. FLUOXETINE [Suspect]
     Dates: start: 20110504

REACTIONS (1)
  - DRUG ERUPTION [None]
